FAERS Safety Report 18597799 (Version 1)
Quarter: 2020Q4

REPORT INFORMATION
  Report Type: Spontaneous
  Country: CO (occurrence: CO)
  Receive Date: 20201210
  Receipt Date: 20201210
  Transmission Date: 20210114
  Serious: Yes (Other)
  Sender: FDA-Public Use
  Company Number: CO-AMGEN-COLSP2020198898

PATIENT
  Age: 53 Year
  Sex: Female
  Weight: 55 kg

DRUGS (10)
  1. PACLITAXEL. [Concomitant]
     Active Substance: PACLITAXEL
     Indication: OVARIAN CANCER
     Dosage: 271.25 MILLIGRAM, QD
     Route: 042
     Dates: start: 20201001
  2. AMITRIPTYLINE [Concomitant]
     Active Substance: AMITRIPTYLINE
     Indication: DEPRESSION
     Dosage: 25 MILLIGRAM, QD
     Route: 048
     Dates: start: 20201026, end: 20201126
  3. DEXAMETHASONE PHOSPHATE [Concomitant]
     Active Substance: DEXAMETHASONE PHOSPHATE
     Indication: OVARIAN CANCER
     Dosage: 16 MILLIGRAM, QD
     Route: 042
     Dates: start: 20201001
  4. ACETAMINOPHEN. [Concomitant]
     Active Substance: ACETAMINOPHEN
     Indication: PAIN
     Dosage: 500 MILLIGRAM, Q8H
     Route: 048
     Dates: start: 20201026, end: 20201126
  5. FOSAPREPITANT [Concomitant]
     Active Substance: FOSAPREPITANT
     Indication: OVARIAN CANCER
     Dosage: 150 MILLIGRAM, QD
     Route: 042
     Dates: start: 20201001
  6. ONDANSETRON [Concomitant]
     Active Substance: ONDANSETRON
     Indication: OVARIAN CANCER
     Dosage: 16 MILLIGRAM, QD
     Route: 042
     Dates: start: 20201001
  7. PEGFILGRASTIM [Concomitant]
     Active Substance: PEGFILGRASTIM
     Indication: OVARIAN CANCER
     Dosage: 6MG/0.6ML, QD
  8. MVASI [Suspect]
     Active Substance: BEVACIZUMAB-AWWB
     Indication: OVARIAN CANCER
     Dosage: 825 MILLIGRAM, QD
     Route: 042
     Dates: start: 20201001
  9. CARBOPLATIN. [Concomitant]
     Active Substance: CARBOPLATIN
     Indication: OVARIAN CANCER
     Dosage: 528.5 MILLIGRAM, QD
     Route: 042
     Dates: start: 20201001
  10. DIPHENHYDRAMINE HYDROCHLORIDE. [Concomitant]
     Active Substance: DIPHENHYDRAMINE HYDROCHLORIDE
     Dosage: 10 MILLIGRAM, QD
     Route: 042
     Dates: start: 20201001

REACTIONS (5)
  - Musculoskeletal pain [Not Recovered/Not Resolved]
  - Device occlusion [Recovering/Resolving]
  - Off label use [Unknown]
  - Oedema peripheral [Recovering/Resolving]
  - Hyperhidrosis [Not Recovered/Not Resolved]

NARRATIVE: CASE EVENT DATE: 20201202
